FAERS Safety Report 10707473 (Version 1)
Quarter: 2015Q1

REPORT INFORMATION
  Report Type: Spontaneous
  Country: US (occurrence: US)
  Receive Date: 20150113
  Receipt Date: 20150113
  Transmission Date: 20150721
  Serious: No
  Sender: FDA-Public Use
  Company Number: US-ASTRAZENECA-2015SE00124

PATIENT
  Age: 50 Year
  Sex: Female
  Weight: 60.1 kg

DRUGS (1)
  1. ZOLADEX [Suspect]
     Active Substance: GOSERELIN ACETATE
     Route: 058

REACTIONS (3)
  - Injection site haemorrhage [Unknown]
  - Drug dose omission [Unknown]
  - Injection site pain [Unknown]

NARRATIVE: CASE EVENT DATE: 20141230
